FAERS Safety Report 4764670-0 (Version None)
Quarter: 2005Q3

REPORT INFORMATION
  Report Type: 
  Country: None (occurrence: None)
  Receive Date: 20050909
  Receipt Date: 20050830
  Transmission Date: 20060218
  Serious: Yes (Other)
  Sender: FDA-Public Use
  Company Number: US-MERCK-0508USA04710

PATIENT
  Age: 66 Year
  Sex: Female

DRUGS (2)
  1. ZETIA [Suspect]
     Indication: BLOOD CHOLESTEROL INCREASED
     Route: 048
     Dates: start: 20050601, end: 20050812
  2. [THERAPY UNSPECIFIED] [Concomitant]
     Route: 065

REACTIONS (6)
  - ALOPECIA [None]
  - BLINDNESS [None]
  - EFFUSION [None]
  - OCULAR VASCULAR DISORDER [None]
  - PHOTOSENSITIVITY REACTION [None]
  - VISUAL DISTURBANCE [None]
